FAERS Safety Report 8367009-7 (Version None)
Quarter: 2012Q2

REPORT INFORMATION
  Report Type: 
  Country: None (occurrence: None)
  Receive Date: 20120517
  Receipt Date: 20120509
  Transmission Date: 20120825
  Serious: Yes (Other)
  Sender: FDA-Public Use
  Company Number: US-JNJFOC-20120513474

PATIENT
  Age: 34 Year
  Sex: Male
  Weight: 83.92 kg

DRUGS (2)
  1. VISINE-A [Suspect]
     Indication: EYE DISORDER
     Dosage: TWO DROPS
     Route: 047
     Dates: start: 20120509, end: 20120509
  2. VISINE-A [Suspect]
     Indication: DRY EYE
     Dosage: TWO DROPS
     Route: 047
     Dates: start: 20120509, end: 20120509

REACTIONS (4)
  - MYDRIASIS [None]
  - DRUG INEFFECTIVE [None]
  - WRONG TECHNIQUE IN DRUG USAGE PROCESS [None]
  - VISION BLURRED [None]
